FAERS Safety Report 8509535-3 (Version None)
Quarter: 2012Q3

REPORT INFORMATION
  Report Type: 
  Country: None (occurrence: None)
  Receive Date: 20120713
  Receipt Date: 20120703
  Transmission Date: 20120928
  Serious: Yes (Hospitalization)
  Sender: FDA-Public Use
  Company Number: DE-BRISTOL-MYERS SQUIBB COMPANY-16752826

PATIENT
  Age: 61 Year
  Sex: Male

DRUGS (6)
  1. FLUOROURACIL [Concomitant]
     Indication: CHEMOTHERAPY
     Dosage: 200MG/M2
     Route: 042
     Dates: start: 20120419
  2. CORTICOSTEROID [Concomitant]
     Indication: PREMEDICATION
     Dosage: 0.5714MG
     Dates: start: 20120503, end: 20120510
  3. IRINOTECAN HCL [Concomitant]
     Indication: CHEMOTHERAPY
     Dosage: 12.8571MG/M2
     Route: 042
     Dates: start: 20120419
  4. RAMIPRIL [Concomitant]
     Indication: HYPERTENSION
     Route: 048
  5. ERBITUX [Suspect]
     Indication: COLORECTAL CANCER METASTATIC
     Dosage: 250MG/M2 (35.7143 MG/M2) 1IN1WK-10MAY 17MAY-INT 250MG/M2 (35.7143 MG/M2) 1IN1WK-8JUN-ONG
     Route: 042
     Dates: start: 20120503
  6. LEUCOVORIN CALCIUM [Concomitant]
     Indication: CHEMOTHERAPY
     Dosage: 28.5714MG/M2
     Route: 042
     Dates: start: 20120419

REACTIONS (1)
  - AORTIC OCCLUSION [None]
